FAERS Safety Report 5575892-3 (Version None)
Quarter: 2007Q4

REPORT INFORMATION
  Report Type: 
  Country: None (occurrence: None)
  Receive Date: 20071228
  Receipt Date: 20071227
  Transmission Date: 20080405
  Serious: Yes (Hospitalization, Other)
  Sender: FDA-Public Use
  Company Number: TR-BRISTOL-MYERS SQUIBB COMPANY-14024509

PATIENT
  Age: 46 Year
  Sex: Female

DRUGS (3)
  1. CISPLATIN [Suspect]
     Indication: NON-SMALL CELL LUNG CANCER
     Dosage: STARTED RECEIVING 4-WEEK CYCLES OF IV CISPLATIN 100MG/M2 ON DAY 1
     Route: 042
  2. GEMCITABINE [Suspect]
     Indication: NON-SMALL CELL LUNG CANCER
     Dosage: STARTED RECEIVING 4-WEEK CYCLES OF IV GEMCITABINE 1000MG/M2 ON DAYS 1,8 AND 15
     Route: 042
  3. RADIOTHERAPY [Suspect]

REACTIONS (1)
  - RENAL INFARCT [None]
